FAERS Safety Report 18207506 (Version 1)
Quarter: 2020Q3

REPORT INFORMATION
  Report Type: Spontaneous
  Country: US (occurrence: US)
  Receive Date: 20200828
  Receipt Date: 20200828
  Transmission Date: 20201103
  Serious: No
  Sender: FDA-Public Use
  Company Number: None

PATIENT
  Age: 70 Year
  Sex: Female
  Weight: 73.48 kg

DRUGS (21)
  1. PIQRAY [Suspect]
     Active Substance: ALPELISIB
     Indication: BREAST CANCER
     Route: 048
     Dates: start: 20200728, end: 20200828
  2. FASLODEX [Concomitant]
     Active Substance: FULVESTRANT
  3. MORPHINE SULFATE ER [Concomitant]
     Active Substance: MORPHINE SULFATE
  4. BASAGLAR KWIKPEN [Concomitant]
     Active Substance: INSULIN GLARGINE
  5. ACETAMINOPHEN PM [Concomitant]
     Active Substance: ACETAMINOPHEN\DIPHENHYDRAMINE HYDROCHLORIDE
  6. LEVOTHYROXINE SODIUM. [Concomitant]
     Active Substance: LEVOTHYROXINE SODIUM
  7. OSCAL 500/200 D?3 [Concomitant]
  8. HUMALOG KWIKPEN [Concomitant]
     Active Substance: INSULIN LISPRO
  9. EVEROLIMUS 5 MG TABLET [Concomitant]
  10. ASPIRIN 81 [Concomitant]
     Active Substance: ASPIRIN
  11. GLUCOTROL XL [Concomitant]
     Active Substance: GLIPIZIDE
  12. METOPROLOL TARTRATE. [Concomitant]
     Active Substance: METOPROLOL TARTRATE
  13. PANTOPRAZOLE SODIUM. [Concomitant]
     Active Substance: PANTOPRAZOLE SODIUM
  14. SIMVASTATIN. [Concomitant]
     Active Substance: SIMVASTATIN
  15. TRULICITY [Concomitant]
     Active Substance: DULAGLUTIDE
  16. PROCHLORPERAZINE MALEATE. [Concomitant]
     Active Substance: PROCHLORPERAZINE MALEATE
  17. DOCUSATE SODIUM. [Concomitant]
     Active Substance: DOCUSATE SODIUM
  18. XGEVA [Concomitant]
     Active Substance: DENOSUMAB
  19. NEURONTIN [Concomitant]
     Active Substance: GABAPENTIN
  20. MELATONIN [Concomitant]
     Active Substance: MELATONIN
  21. OXYCODONE?ACETAMINOPHEN [Concomitant]
     Active Substance: ACETAMINOPHEN\OXYCODONE HYDROCHLORIDE

REACTIONS (4)
  - Fatigue [None]
  - Mucosal inflammation [None]
  - Hyperglycaemia [None]
  - Weight decreased [None]

NARRATIVE: CASE EVENT DATE: 20200828
